FAERS Safety Report 5342361-5 (Version None)
Quarter: 2007Q2

REPORT INFORMATION
  Report Type: 
  Country: None (occurrence: None)
  Receive Date: 20070601
  Receipt Date: 20070522
  Transmission Date: 20071010
  Serious: Yes (Life-Threatening)
  Sender: FDA-Public Use
  Company Number: FR-PFIZER INC-2007031604

PATIENT
  Age: 63 Year
  Sex: Female

DRUGS (6)
  1. SOLU-MEDROL [Suspect]
     Indication: PROPHYLAXIS
     Dates: start: 20051220, end: 20061220
  2. SERESTA [Suspect]
  3. OSMOTAN [Suspect]
     Indication: PROPHYLAXIS
     Dates: start: 20051220, end: 20061220
  4. ZOFRAN [Suspect]
     Indication: PROPHYLAXIS
     Dates: start: 20051220, end: 20061220
  5. DAFLON [Suspect]
  6. GEMZAR [Suspect]
     Indication: BREAST CANCER
     Dosage: DAILY DOSE:1000MG-FREQ:CYCLIC
     Dates: start: 20060110, end: 20061221

REACTIONS (5)
  - CALCINOSIS [None]
  - ESCHERICHIA SEPSIS [None]
  - HAEMOLYTIC URAEMIC SYNDROME [None]
  - LIVEDO RETICULARIS [None]
  - PERITONEAL DISORDER [None]
